FAERS Safety Report 7405085-6 (Version None)
Quarter: 2011Q2

REPORT INFORMATION
  Report Type: 
  Country: None (occurrence: None)
  Receive Date: 20110404
  Receipt Date: 20110401
  Transmission Date: 20111010
  Serious: Yes (Other)
  Sender: FDA-Public Use
  Company Number: SP03581

PATIENT
  Age: 54 Year
  Sex: Male

DRUGS (2)
  1. OSMOPREP [Suspect]
     Indication: BOWEL PREPARATION
     Dosage: (32 TABLETS), ORAL
     Route: 048
     Dates: start: 20110210, end: 20110211
  2. TAMSULOSIN [Concomitant]

REACTIONS (5)
  - GASTRIC ULCER [None]
  - GASTROINTESTINAL EROSION [None]
  - GASTROINTESTINAL NECROSIS [None]
  - ABDOMINAL PAIN UPPER [None]
  - DYSPEPSIA [None]
